FAERS Safety Report 19374077 (Version 1)
Quarter: 2021Q2

REPORT INFORMATION
  Report Type: Report from Study
  Country: JP (occurrence: JP)
  Receive Date: 20210603
  Receipt Date: 20210603
  Transmission Date: 20210717
  Serious: Yes (Other)
  Sender: FDA-Public Use
  Company Number: JP-INSUD PHARMA-2105JP00616

PATIENT

DRUGS (2)
  1. SULFAMETHOXAZOLE;TRIMETHOPRIM [Suspect]
     Active Substance: SULFAMETHOXAZOLE\TRIMETHOPRIM
     Indication: PRODUCT USED FOR UNKNOWN INDICATION
     Dosage: UNKNOWN
     Route: 065
  2. LANSOPRAZOLE. [Suspect]
     Active Substance: LANSOPRAZOLE
     Indication: PRODUCT USED FOR UNKNOWN INDICATION
     Dosage: UNKNOWN
     Route: 065

REACTIONS (8)
  - Pyrexia [Unknown]
  - White blood cell disorder [Unknown]
  - Lymphadenopathy [Unknown]
  - Human herpesvirus 6 infection reactivation [Unknown]
  - Drug reaction with eosinophilia and systemic symptoms [Unknown]
  - Rash maculo-papular [Unknown]
  - Basedow^s disease [Unknown]
  - Hepatic function abnormal [Unknown]
